FAERS Safety Report 24663447 (Version 1)
Quarter: 2024Q4

REPORT INFORMATION
  Report Type: Report from Study
  Country: US (occurrence: US)
  Receive Date: 20241126
  Receipt Date: 20241126
  Transmission Date: 20250115
  Serious: Yes (Hospitalization)
  Sender: RECORDATI
  Company Number: US-ORPHANEU-2024009205

PATIENT

DRUGS (13)
  1. ISTURISA [Suspect]
     Active Substance: OSILODROSTAT PHOSPHATE
     Indication: Cushing^s syndrome
     Dosage: 2 MILLIGRAM, BID
     Route: 048
  2. SIGNIFOR LAR [Suspect]
     Active Substance: PASIREOTIDE PAMOATE
     Indication: Cushing^s syndrome
     Dosage: 10 MILLIGRAM (EACH) , EVERY 4 WEEKS
     Route: 030
     Dates: end: 20241025
  3. SIGNIFOR LAR [Suspect]
     Active Substance: PASIREOTIDE PAMOATE
     Dosage: 10 MILLIGRAM (EACH) , EVERY 4 WEEKS
     Route: 030
     Dates: start: 2024
  4. CABERGOLINE [Concomitant]
     Active Substance: CABERGOLINE
     Indication: Product used for unknown indication
     Dosage: 0.5 MILLIGRAM, BIW (ORAL TABLET)
     Route: 048
     Dates: start: 20231214
  5. CARVEDILOL [Concomitant]
     Active Substance: CARVEDILOL
     Indication: Product used for unknown indication
     Dosage: 12.5 MILLIGRAM, BID (ORAL TABLET)
     Route: 048
     Dates: start: 20231214
  6. IBUPROFEN [Concomitant]
     Active Substance: IBUPROFEN
     Indication: Product used for unknown indication
     Dosage: 200 MILLIGRAM, PRN (ORAL TABLET)
     Route: 048
     Dates: start: 20240102
  7. LOSARTAN POTASSIUM [Concomitant]
     Active Substance: LOSARTAN POTASSIUM
     Indication: Product used for unknown indication
     Dosage: 50 MILLIGRAM, BID (ORAL TABLET)
     Route: 048
     Dates: start: 20231214
  8. MOUNJARO [Concomitant]
     Active Substance: TIRZEPATIDE
     Indication: Product used for unknown indication
     Dosage: 7.5 MG/0.5ML, QW (SUBCUTANEOUS SOLUTION PEN)
     Route: 058
     Dates: start: 20231214
  9. ROSUVASTATIN [Concomitant]
     Active Substance: ROSUVASTATIN
     Indication: Product used for unknown indication
     Dosage: 20 MILLIGRAM, QD (ORAL TABLET)
     Route: 048
     Dates: start: 20231214
  10. SPIRONOLACTONE [Concomitant]
     Active Substance: SPIRONOLACTONE
     Indication: Product used for unknown indication
     Dosage: 25 MILLIGRAM, BID (ORAL TABLET)
     Route: 048
     Dates: start: 20231214
  11. SYNJARDY XR [Concomitant]
     Active Substance: EMPAGLIFLOZIN\METFORMIN HYDROCHLORIDE
     Indication: Product used for unknown indication
     Dosage: 5-1000 MILLIGRAMS, QD (ORAL TABLET EXTENDED RE)
     Route: 048
     Dates: start: 20231214
  12. TOUJEO [Concomitant]
     Active Substance: INSULIN GLARGINE
     Indication: Product used for unknown indication
     Dosage: 300 UNITS PER MILLILITER (UNITS/ML), QD (SUBCUTANEOUS SOLUTION)
     Route: 058
     Dates: start: 20231214
  13. VITAMIN D3 [Concomitant]
     Active Substance: CHOLECALCIFEROL
     Indication: Product used for unknown indication
     Dosage: 25 MICROGRAM, QD (ORAL CAPSULE 25 MCG)
     Route: 048
     Dates: start: 20230101

REACTIONS (3)
  - Abscess [Not Recovered/Not Resolved]
  - Sepsis [Not Recovered/Not Resolved]
  - Expired product administered [Recovered/Resolved]

NARRATIVE: CASE EVENT DATE: 20240901
